FAERS Safety Report 20619757 (Version 3)
Quarter: 2022Q2

REPORT INFORMATION
  Report Type: Spontaneous
  Country: JP (occurrence: JP)
  Receive Date: 20220322
  Receipt Date: 20220503
  Transmission Date: 20220721
  Serious: Yes (Other)
  Sender: FDA-Public Use
  Company Number: JP-ASTELLAS-2022JP004561

PATIENT
  Age: 9 Decade
  Sex: Male

DRUGS (4)
  1. XTANDI [Suspect]
     Active Substance: ENZALUTAMIDE
     Indication: Prostate cancer
     Route: 048
     Dates: start: 20200916, end: 20210831
  2. XTANDI [Suspect]
     Active Substance: ENZALUTAMIDE
     Route: 048
     Dates: start: 20220318
  3. DOCETAXEL [Suspect]
     Active Substance: DOCETAXEL
     Indication: Prostatic specific antigen increased
     Dosage: UNK UNK, UNKNOWN FREQ.
     Route: 065
     Dates: start: 20220118, end: 20220118
  4. ZYTIGA [Concomitant]
     Active Substance: ABIRATERONE ACETATE
     Indication: Prostatic specific antigen increased
     Dosage: UNK UNK, UNKNOWN FREQ.
     Route: 065
     Dates: start: 20210901, end: 20220117

REACTIONS (3)
  - Myelosuppression [Recovered/Resolved]
  - Prostatic specific antigen increased [Recovered/Resolved]
  - Nausea [Recovered/Resolved]

NARRATIVE: CASE EVENT DATE: 20220204
